FAERS Safety Report 14794937 (Version 1)
Quarter: 2018Q2

REPORT INFORMATION
  Report Type: Spontaneous
  Country: RS (occurrence: RS)
  Receive Date: 20180423
  Receipt Date: 20180423
  Transmission Date: 20180711
  Serious: Yes (Other)
  Sender: FDA-Public Use
  Company Number: PHHY2018RS068991

PATIENT
  Age: 52 Year
  Sex: Male

DRUGS (7)
  1. METOPROLOL. [Suspect]
     Active Substance: METOPROLOL
     Indication: AORTIC DILATATION
  2. NEBIVOLOL. [Suspect]
     Active Substance: NEBIVOLOL
     Indication: AORTIC DILATATION
  3. NEBIVOLOL. [Suspect]
     Active Substance: NEBIVOLOL
     Indication: TACHYCARDIA
     Dosage: 0.25 DF, QD
     Route: 065
  4. METOPROLOL. [Suspect]
     Active Substance: METOPROLOL
     Indication: TACHYCARDIA
     Dosage: 0.25 DF, QD
     Route: 048
  5. CONCOR [Suspect]
     Active Substance: BISOPROLOL FUMARATE
     Indication: TACHYCARDIA
  6. CONCOR [Suspect]
     Active Substance: BISOPROLOL FUMARATE
     Indication: AORTIC DILATATION
     Dosage: UNK
     Route: 065
  7. LOTAR [Concomitant]
     Active Substance: AMLODIPINE\LOSARTAN
     Indication: HYPERTENSION
     Dosage: 50 MG, QD
     Route: 048

REACTIONS (5)
  - Bradycardia [Unknown]
  - Colon cancer [Unknown]
  - Malaise [Unknown]
  - Fatigue [Unknown]
  - Hypotension [Unknown]
